FAERS Safety Report 17134122 (Version 1)
Quarter: 2019Q4

REPORT INFORMATION
  Report Type: Spontaneous
  Country: JP (occurrence: JP)
  Receive Date: 20191210
  Receipt Date: 20191210
  Transmission Date: 20200122
  Serious: Yes (Other)
  Sender: FDA-Public Use
  Company Number: JP-GLAXOSMITHKLINE-JP2019222299

PATIENT
  Age: 58 Year
  Sex: Female

DRUGS (1)
  1. RELVAR ELLIPTA [Suspect]
     Active Substance: FLUTICASONE FUROATE\VILANTEROL TRIFENATATE
     Indication: ASTHMA
     Dosage: 100 ?G, BID
     Route: 055

REACTIONS (3)
  - Off label use [Unknown]
  - Arrhythmia [Unknown]
  - Inappropriate schedule of product administration [Unknown]
